FAERS Safety Report 19560369 (Version 1)
Quarter: 2021Q3

REPORT INFORMATION
  Report Type: Spontaneous
  Country: US (occurrence: US)
  Receive Date: 20210714
  Receipt Date: 20210714
  Transmission Date: 20211014
  Serious: No
  Sender: FDA-Public Use
  Company Number: US-SK LIFE SCIENCE, INC-SKPVG-2020-000254

PATIENT

DRUGS (2)
  1. XCOPRI [Suspect]
     Active Substance: CENOBAMATE
     Indication: SEIZURE
     Dosage: 350 MILLIGRAM (150 MG AND 200 MG), QD
     Route: 048
     Dates: start: 2020, end: 20200906
  2. XCOPRI [Suspect]
     Active Substance: CENOBAMATE
     Dosage: 350 MILLIGRAM (150 MG AND 200 MG) , QD
     Route: 048
     Dates: start: 20200908

REACTIONS (3)
  - Confusional state [Recovering/Resolving]
  - Focal dyscognitive seizures [Recovering/Resolving]
  - Product dose omission issue [Recovered/Resolved]

NARRATIVE: CASE EVENT DATE: 2020
